FAERS Safety Report 24933452 (Version 1)
Quarter: 2025Q1

REPORT INFORMATION
  Report Type: Spontaneous
  Country: SE (occurrence: SE)
  Receive Date: 20250206
  Receipt Date: 20250206
  Transmission Date: 20250409
  Serious: Yes (Other)
  Sender: ROCHE
  Company Number: None

PATIENT
  Age: 57 Year
  Sex: Male

DRUGS (1)
  1. RISDIPLAM [Suspect]
     Active Substance: RISDIPLAM
     Indication: Muscle atrophy
     Route: 048

REACTIONS (3)
  - Lichenoid keratosis [Not Recovered/Not Resolved]
  - Photosensitivity reaction [Unknown]
  - Oral lichen planus [Not Recovered/Not Resolved]
